FAERS Safety Report 24373124 (Version 1)
Quarter: 2024Q3

REPORT INFORMATION
  Report Type: Spontaneous
  Country: US (occurrence: US)
  Receive Date: 20240927
  Receipt Date: 20240927
  Transmission Date: 20241017
  Serious: No
  Sender: MYLAN
  Company Number: US-MYLANLABS-2024M1084036

PATIENT
  Sex: Female

DRUGS (2)
  1. PROPRANOLOL HYDROCHLORIDE [Suspect]
     Active Substance: PROPRANOLOL HYDROCHLORIDE
     Indication: Product used for unknown indication
     Dosage: 20 MILLIGRAM, QID (FOUR TIMES A DAY)
     Route: 048
  2. PROPRANOLOL HYDROCHLORIDE [Suspect]
     Active Substance: PROPRANOLOL HYDROCHLORIDE
     Dosage: 10 MILLIGRAM,PRN (AS NEEDED IF PATIENT NEED EXTRA STRENGTH)
     Route: 048

REACTIONS (4)
  - Throat irritation [Unknown]
  - Oropharyngeal pain [Unknown]
  - Product storage error [Unknown]
  - Product coating issue [Unknown]
